FAERS Safety Report 15974458 (Version 2)
Quarter: 2019Q2

REPORT INFORMATION
  Report Type: Report from Study
  Country: BE (occurrence: BE)
  Receive Date: 20190218
  Receipt Date: 20190429
  Transmission Date: 20190711
  Serious: Yes (Death, Hospitalization, Other)
  Sender: FDA-Public Use
  Company Number: BE-ACCORD-107575

PATIENT

DRUGS (1)
  1. GEMCITABINE/GEMCITABINE HYDROCHLORIDE [Suspect]
     Active Substance: GEMCITABINE\GEMCITABINE HYDROCHLORIDE
     Indication: B-CELL LYMPHOMA

REACTIONS (4)
  - Off label use [Unknown]
  - Respiratory syncytial virus infection [Fatal]
  - Sepsis [Fatal]
  - Respiratory failure [Fatal]
